FAERS Safety Report 11157486 (Version 2)
Quarter: 2015Q2

REPORT INFORMATION
  Report Type: Report from Study
  Country: AU (occurrence: AU)
  Receive Date: 20150603
  Receipt Date: 20150623
  Transmission Date: 20150821
  Serious: Yes (Death)
  Sender: FDA-Public Use
  Company Number: AU-ROCHE-1587352

PATIENT
  Age: 67 Year
  Sex: Female
  Weight: 46 kg

DRUGS (6)
  1. RANIBIZUMAB [Suspect]
     Active Substance: RANIBIZUMAB
     Indication: CHOROIDAL NEOVASCULARISATION
     Dosage: ON 02/APR/2015 THE PATIENT RECEIVED LUCENTIS IN RIGHT EYE PRIOR TO EVENT
     Route: 050
     Dates: start: 20150312
  2. DILTIAZEM HYDROCHLORIDE. [Concomitant]
     Active Substance: DILTIAZEM HYDROCHLORIDE
  3. MICARDIS [Concomitant]
     Active Substance: TELMISARTAN
  4. PANADEINE (AUSTRALIA) [Concomitant]
  5. RANIBIZUMAB [Suspect]
     Active Substance: RANIBIZUMAB
     Indication: NEOVASCULAR AGE-RELATED MACULAR DEGENERATION
     Dosage: STRENGTH: 0.5 MG IN 0.05 ML.
     Route: 050
     Dates: start: 20120816
  6. ENDONE [Concomitant]
     Active Substance: OXYCODONE HYDROCHLORIDE

REACTIONS (1)
  - Post procedural stroke [Fatal]

NARRATIVE: CASE EVENT DATE: 20150429
